FAERS Safety Report 17914595 (Version 1)
Quarter: 2020Q2

REPORT INFORMATION
  Report Type: Spontaneous
  Country: ES (occurrence: ES)
  Receive Date: 20200619
  Receipt Date: 20200619
  Transmission Date: 20200714
  Serious: Yes (Other)
  Sender: FDA-Public Use
  Company Number: ES-US-PROVELL PHARMACEUTICALS LLC-E2B_90078142

PATIENT
  Age: 25 Year
  Sex: Female

DRUGS (1)
  1. EUTIROX [Suspect]
     Active Substance: LEVOTHYROXINE SODIUM
     Indication: HYPOTHYROIDISM
     Route: 048
     Dates: start: 20190509, end: 20200528

REACTIONS (2)
  - Product formulation issue [Recovered/Resolved]
  - Dermatitis bullous [Unknown]

NARRATIVE: CASE EVENT DATE: 20200521
